FAERS Safety Report 5264291-X (Version None)
Quarter: 2007Q1

REPORT INFORMATION
  Report Type: 
  Country: None (occurrence: None)
  Receive Date: 20070309
  Receipt Date: 20070223
  Transmission Date: 20070707
  Serious: Yes (Hospitalization)
  Sender: FDA-Public Use
  Company Number: 235132

PATIENT
  Age: 69 Year
  Sex: Male
  Weight: 75 kg

DRUGS (9)
  1. AVASTIN [Suspect]
     Indication: COLON CANCER
     Dosage: 360 MG, INTRAVENOUS
     Route: 042
     Dates: start: 20061002, end: 20070109
  2. OXALIPLATIN [Suspect]
     Indication: COLON CANCER
     Dosage: 150 MG, INTRAVENOUS
     Route: 042
     Dates: start: 20061002, end: 20070109
  3. FLUOROURACIL [Suspect]
     Indication: COLON CANCER
     Dosage: SEE IMAGE
     Route: 042
     Dates: start: 20061002, end: 20070109
  4. LEUCOVORIN CALCIUM [Suspect]
     Indication: COLON CANCER
     Dosage: 370 MG, INTRAVENOUS
     Route: 042
     Dates: start: 20061002, end: 20070109
  5. TEVETEN [Concomitant]
  6. RAMIPRIL [Concomitant]
  7. PANTOPRAZOLE SODIUM [Concomitant]
  8. TICLOPIDINE HCL [Concomitant]
  9. NITROGLYCERIN [Concomitant]

REACTIONS (1)
  - PERIANAL ABSCESS [None]
